FAERS Safety Report 7949762-7 (Version None)
Quarter: 2011Q4

REPORT INFORMATION
  Report Type: 
  Country: None (occurrence: None)
  Receive Date: 20111130
  Receipt Date: 20111122
  Transmission Date: 20120403
  Serious: Yes (Hospitalization, Disabling, Other)
  Sender: FDA-Public Use
  Company Number: PHEH2011US010015

PATIENT
  Age: 61 Year
  Sex: Female

DRUGS (6)
  1. VANCOMYCIN [Concomitant]
     Indication: PAIN
     Dosage: UNK UKN, UNK
  2. TORSEMIDE [Concomitant]
     Dosage: UNK UKN, UNK
  3. RECLAST [Suspect]
     Indication: OSTEOPOROSIS
     Dosage: 5 MG, UNK
     Route: 042
  4. SYNTHROID [Concomitant]
     Dosage: UNK UKN, UNK
  5. DILAUDID [Concomitant]
     Indication: PAIN
     Dosage: UNK UKN, UNK
  6. POTASSIUM CHLORIDE [Concomitant]

REACTIONS (9)
  - LIMB DISCOMFORT [None]
  - MUSCULOSKELETAL DISCOMFORT [None]
  - CHILLS [None]
  - MALAISE [None]
  - MUSCULOSKELETAL DISORDER [None]
  - GAIT DISTURBANCE [None]
  - LIMB DEFORMITY [None]
  - HYPOKINESIA [None]
  - PYREXIA [None]
